FAERS Safety Report 4318630-4 (Version None)
Quarter: 2004Q1

REPORT INFORMATION
  Report Type: 
  Country: None (occurrence: None)
  Receive Date: 20040315
  Receipt Date: 20040304
  Transmission Date: 20041129
  Serious: Yes (Hospitalization)
  Sender: FDA-Public Use
  Company Number: 04P-056-0252677-00

PATIENT
  Age: 50 Year
  Sex: Female
  Weight: 70 kg

DRUGS (7)
  1. KALETRA [Suspect]
     Indication: HIV INFECTION
     Dosage: PER ORAL
     Route: 048
     Dates: start: 20031114, end: 20040123
  2. DIDANOSINE [Suspect]
     Indication: HIV INFECTION
     Dosage: PER ORAL
     Dates: start: 20031114
  3. TENOFOVIR [Suspect]
     Indication: HIV INFECTION
     Dosage: PER ORAL
     Route: 048
  4. BACTRIM [Concomitant]
  5. AMPRENAVIR [Concomitant]
  6. LOPERAMIDE HCL [Concomitant]
  7. RITONAVIR [Concomitant]

REACTIONS (2)
  - DIARRHOEA [None]
  - PANCYTOPENIA [None]
